FAERS Safety Report 6313346-7 (Version None)
Quarter: 2009Q3

REPORT INFORMATION
  Report Type: 
  Country: None (occurrence: None)
  Receive Date: 20090818
  Receipt Date: 20090811
  Transmission Date: 20100115
  Serious: Yes (Other)
  Sender: FDA-Public Use
  Company Number: B0588968A

PATIENT
  Age: 29 Year
  Sex: Female

DRUGS (1)
  1. ALLI [Suspect]
     Indication: WEIGHT CONTROL
     Dosage: 3U PER DAY
     Route: 065
     Dates: start: 20090803, end: 20090806

REACTIONS (9)
  - ASTHENIA [None]
  - DIARRHOEA [None]
  - DIZZINESS [None]
  - DYSPEPSIA [None]
  - INTENTIONAL DRUG MISUSE [None]
  - JOINT STIFFNESS [None]
  - MUSCULOSKELETAL STIFFNESS [None]
  - SKIN DISCOLOURATION [None]
  - VOMITING [None]
